FAERS Safety Report 4487842-1 (Version None)
Quarter: 2004Q4

REPORT INFORMATION
  Report Type: 
  Country: None (occurrence: None)
  Receive Date: 20041025
  Receipt Date: 20041015
  Transmission Date: 20050328
  Serious: Yes (Death)
  Sender: FDA-Public Use
  Company Number: STA-AE-04-MTX-452

PATIENT
  Age: 77 Year
  Sex: Male

DRUGS (1)
  1. RHEUMATREX [Suspect]
     Indication: RHEUMATOID ARTHRITIS
     Dosage: 4 MG 1X PER 1 WK, ORAL
     Route: 048
     Dates: start: 20020301, end: 20040101

REACTIONS (1)
  - PERIPHERAL T-CELL LYMPHOMA UNSPECIFIED STAGE III [None]
